FAERS Safety Report 25723976 (Version 1)
Quarter: 2025Q3

REPORT INFORMATION
  Report Type: Spontaneous
  Country: US (occurrence: US)
  Receive Date: 20250825
  Receipt Date: 20250825
  Transmission Date: 20251021
  Serious: No
  Sender: CIPLA
  Company Number: US-CIPLA LTD.-2025US10452

PATIENT

DRUGS (3)
  1. BUDESONIDE [Suspect]
     Active Substance: BUDESONIDE
     Indication: Acute sinusitis
     Dates: start: 202502
  2. BUDESONIDE [Suspect]
     Active Substance: BUDESONIDE
     Indication: Respiratory disorder
     Dates: start: 202508
  3. ALBUTEROL [Concomitant]
     Active Substance: ALBUTEROL
     Indication: Acute sinusitis
     Dosage: 1 DOSAGE FORM, BID (MORNING, AFTERNOON OR AT NIGHT), SOLUTION
     Route: 065
     Dates: start: 202507

REACTIONS (2)
  - Recalled product administered [Unknown]
  - Off label use [Unknown]

NARRATIVE: CASE EVENT DATE: 20250201
